FAERS Safety Report 25281305 (Version 1)
Quarter: 2025Q2

REPORT INFORMATION
  Report Type: Spontaneous
  Country: DE (occurrence: DE)
  Receive Date: 20250508
  Receipt Date: 20250508
  Transmission Date: 20250716
  Serious: Yes (Other)
  Sender: ORGANON
  Company Number: DE-ORGANON-O2504DEU003029

PATIENT
  Age: 51 Year
  Sex: Male

DRUGS (2)
  1. MAXALT [Suspect]
     Active Substance: RIZATRIPTAN BENZOATE
     Indication: Migraine
     Route: 048
  2. MAXALT [Suspect]
     Active Substance: RIZATRIPTAN BENZOATE
     Dosage: 25 MILLIGRAM, QD
     Route: 048

REACTIONS (4)
  - Migraine with aura [Not Recovered/Not Resolved]
  - Oxygen saturation decreased [Not Recovered/Not Resolved]
  - Overdose [Unknown]
  - Product availability issue [Unknown]
